FAERS Safety Report 10118823 (Version 2)
Quarter: 2014Q2

REPORT INFORMATION
  Report Type: Spontaneous
  Country: US (occurrence: US)
  Receive Date: 20140425
  Receipt Date: 20140617
  Transmission Date: 20141212
  Serious: Yes (Hospitalization)
  Sender: FDA-Public Use
  Company Number: US-ASTELLAS-2014US004160

PATIENT
  Age: 56 Year
  Sex: Male

DRUGS (2)
  1. PROGRAF [Suspect]
     Indication: PRODUCT USED FOR UNKNOWN INDICATION
     Dosage: LOWER DOSE,UNKNOWN FREQ.
     Route: 048
  2. PROGRAF [Suspect]
     Route: 048
     Dates: end: 20140414

REACTIONS (2)
  - Subdural haematoma [Unknown]
  - Fall [Unknown]
